FAERS Safety Report 16648968 (Version 1)
Quarter: 2019Q3

REPORT INFORMATION
  Report Type: Spontaneous
  Country: US (occurrence: US)
  Receive Date: 20190730
  Receipt Date: 20190730
  Transmission Date: 20191004
  Serious: Yes (Other)
  Sender: FDA-Public Use
  Company Number: US-TEVA-2019-US-1084110

PATIENT
  Sex: Female

DRUGS (13)
  1. DIAZEPAM. [Concomitant]
     Active Substance: DIAZEPAM
     Indication: NAUSEA
     Dosage: 5 MILLIGRAM DAILY;
     Route: 065
  2. DIAZEPAM. [Concomitant]
     Active Substance: DIAZEPAM
     Indication: POOR QUALITY SLEEP
  3. KETAMINE [Concomitant]
     Active Substance: KETAMINE
     Indication: AFFECTIVE DISORDER
     Dosage: LOW DOSE
     Route: 048
  4. FENTANYL. [Suspect]
     Active Substance: FENTANYL
     Indication: PAIN
     Dosage: THE DOSE WAS SUBSEQUENTLY REDUCED TO 25 MICROG/HOUR
     Route: 062
  5. FENTANYL. [Suspect]
     Active Substance: FENTANYL
     Dosage: PATCH
     Route: 062
  6. DIAZEPAM. [Concomitant]
     Active Substance: DIAZEPAM
     Indication: ANXIETY
     Dosage: 10 MILLIGRAM DAILY;
     Route: 065
  7. VALPROIC ACID. [Concomitant]
     Active Substance: VALPROIC ACID
     Indication: AFFECTIVE DISORDER
     Route: 065
  8. METHADONE [Suspect]
     Active Substance: METHADONE HYDROCHLORIDE
     Indication: PAIN
     Dosage: 40 MILLIGRAM DAILY;
     Route: 065
  9. METHADONE [Suspect]
     Active Substance: METHADONE HYDROCHLORIDE
     Indication: PAIN
     Dosage: 30 MILLIGRAM DAILY;
     Route: 065
  10. DILAUDID [Concomitant]
     Active Substance: HYDROMORPHONE HYDROCHLORIDE
     Indication: SUICIDAL IDEATION
     Dosage: 6 MILLIGRAM DAILY; THREE TIMES DAILY
     Route: 048
  11. METHADONE [Suspect]
     Active Substance: METHADONE HYDROCHLORIDE
     Indication: PAIN
     Dosage: 30 MILLIGRAM DAILY; IN DIVIDED DOSES
     Route: 065
  12. ESCITALOPRAM [Concomitant]
     Active Substance: ESCITALOPRAM OXALATE
     Indication: AFFECTIVE DISORDER
     Route: 065
  13. METHADONE [Suspect]
     Active Substance: METHADONE HYDROCHLORIDE
     Indication: PAIN
     Dosage: 60 MILLIGRAM DAILY;
     Route: 065

REACTIONS (2)
  - Drug dependence [Unknown]
  - Drug use disorder [Unknown]
